FAERS Safety Report 8970224 (Version 1)
Quarter: 2012Q4

REPORT INFORMATION
  Report Type: 
  Country: FR (occurrence: FR)
  Receive Date: 20121217
  Receipt Date: 20121217
  Transmission Date: 20130627
  Serious: Yes (Hospitalization)
  Sender: FDA-Public Use
  Company Number: FR-009507513-1107USA01360

PATIENT
  Age: 75 Year
  Sex: Male

DRUGS (5)
  1. JANUMET [Suspect]
     Indication: TYPE 2 DIABETES MELLITUS
     Dosage: 50/100
     Route: 048
  2. KARDEGIC [Suspect]
     Dosage: 75 mg, qd
     Route: 048
  3. MOPRAL [Suspect]
     Dosage: 20 mg, qd
     Route: 048
  4. ZYLORIC [Suspect]
     Dosage: 100 mg, qd
     Route: 048
  5. HYDROCORTISONE [Suspect]
     Dosage: 4 mg, qd
     Route: 048

REACTIONS (2)
  - Lung infection [Recovered/Resolved]
  - Blood glucose abnormal [None]
